FAERS Safety Report 26151858 (Version 1)
Quarter: 2025Q4

REPORT INFORMATION
  Report Type: Spontaneous
  Country: EU (occurrence: EU)
  Receive Date: 20251214
  Receipt Date: 20251214
  Transmission Date: 20260117
  Serious: Yes (Hospitalization, Other)
  Sender: PFIZER
  Company Number: EU-ABBVIE-6570353

PATIENT
  Age: 44 Year
  Sex: Male

DRUGS (4)
  1. ADALIMUMAB [Suspect]
     Active Substance: ADALIMUMAB
     Indication: Crohn^s disease
     Dosage: UNK
  2. ADALIMUMAB [Suspect]
     Active Substance: ADALIMUMAB
     Indication: Crohn^s disease
     Dosage: FREQ:2 WK;FIRST ADMIN DATE-2016
     Route: 058
     Dates: start: 2016
  3. ADALIMUMAB [Suspect]
     Active Substance: ADALIMUMAB
     Dosage: 40 MG, WEEKLY
     Route: 058
     Dates: end: 201902
  4. CIPROFLOXACIN [Concomitant]
     Active Substance: CIPROFLOXACIN
     Dosage: FREQ:14 D
     Dates: start: 202404

REACTIONS (6)
  - Abscess intestinal [Unknown]
  - Condition aggravated [Unknown]
  - Abnormal faeces [Unknown]
  - Pseudopolyp [Recovering/Resolving]
  - Pyrexia [Unknown]
  - Fistula discharge [Unknown]

NARRATIVE: CASE EVENT DATE: 20240101
